FAERS Safety Report 8530288-7 (Version None)
Quarter: 2012Q2

REPORT INFORMATION
  Report Type: 
  Country: None (occurrence: None)
  Receive Date: 20120411
  Receipt Date: 20120307
  Transmission Date: 20120825
  Serious: No
  Sender: FDA-Public Use
  Company Number: PHEH2012US005235

PATIENT
  Age: 35 Year
  Sex: Female

DRUGS (1)
  1. ILARIS [Suspect]
     Dates: start: 20110101

REACTIONS (1)
  - DRUG EFFECT DECREASED [None]
